FAERS Safety Report 19453704 (Version 3)
Quarter: 2021Q4

REPORT INFORMATION
  Report Type: Spontaneous
  Country: NL (occurrence: NL)
  Receive Date: 20210623
  Receipt Date: 20211006
  Transmission Date: 20220303
  Serious: Yes (Other)
  Sender: FDA-Public Use
  Company Number: None

PATIENT
  Age: 61 Year
  Sex: Male
  Weight: 79 kg

DRUGS (2)
  1. PANTOPRAZOLE [Interacting]
     Active Substance: PANTOPRAZOLE
     Dosage: UNK
     Dates: start: 2019, end: 20210507
  2. ASTRAZENECA COVID-19 VACCINE [Interacting]
     Active Substance: AZD-1222
     Dosage: UNK
     Dates: start: 20210501, end: 20210501

REACTIONS (12)
  - Pharyngeal swelling [Not Recovered/Not Resolved]
  - Headache [Not Recovered/Not Resolved]
  - Myalgia [Not Recovered/Not Resolved]
  - Fatigue [Not Recovered/Not Resolved]
  - Pyrexia [Recovering/Resolving]
  - Dyspepsia [Not Recovered/Not Resolved]
  - Nausea [Not Recovered/Not Resolved]
  - Malaise [Not Recovered/Not Resolved]
  - Burning sensation [Recovered/Resolved]
  - Vaccination site swelling [Not Recovered/Not Resolved]
  - Oropharyngeal pain [Recovered/Resolved]
  - Drug interaction [Not Recovered/Not Resolved]

NARRATIVE: CASE EVENT DATE: 20210501
